FAERS Safety Report 17480923 (Version 1)
Quarter: 2020Q1

REPORT INFORMATION
  Report Type: Spontaneous
  Country: DZ (occurrence: DZ)
  Receive Date: 20200302
  Receipt Date: 20200302
  Transmission Date: 20200409
  Serious: Yes (Hospitalization)
  Sender: FDA-Public Use
  Company Number: DZ-B.I. PHARMACEUTICALS,INC./RIDGEFIELD-2020-BI-004670

PATIENT
  Age: 76 Year
  Sex: Male

DRUGS (1)
  1. SPIRIVA [Suspect]
     Active Substance: TIOTROPIUM BROMIDE MONOHYDRATE
     Indication: CHRONIC OBSTRUCTIVE PULMONARY DISEASE
     Route: 055
     Dates: start: 201912, end: 201912

REACTIONS (5)
  - Erythema [Recovered/Resolved]
  - Urticaria [Unknown]
  - Urinary tract infection [Recovered/Resolved]
  - Angioedema [Recovered/Resolved]
  - Skin lesion [Recovered/Resolved]

NARRATIVE: CASE EVENT DATE: 201912
